FAERS Safety Report 8875995 (Version 1)
Quarter: 2012Q4

REPORT INFORMATION
  Report Type: 
  Country: FR (occurrence: FR)
  Receive Date: 20121023
  Receipt Date: 20121023
  Transmission Date: 20130627
  Serious: Yes (Life-Threatening, Hospitalization, Other)
  Sender: FDA-Public Use
  Company Number: FR-BRISTOL-MYERS SQUIBB COMPANY-16992224

PATIENT
  Age: 25 Year
  Sex: Female
  Weight: 50 kg

DRUGS (5)
  1. REYATAZ CAPS [Suspect]
     Route: 048
     Dates: end: 20120807
  2. NORVIR [Suspect]
     Route: 048
     Dates: end: 20120807
  3. KIVEXA [Suspect]
     Dosage: 1 Df:1 tab
     Route: 048
     Dates: start: 20120423
  4. INNOHEP [Concomitant]
     Indication: PULMONARY EMBOLISM
     Route: 058
     Dates: start: 20120423
  5. TARDYFERON [Concomitant]
     Indication: IRON DEFICIENCY ANAEMIA
     Dosage: 1 Df:1 tab
     Dates: start: 20120423

REACTIONS (3)
  - Pancreatitis acute [Not Recovered/Not Resolved]
  - Cholelithiasis [Not Recovered/Not Resolved]
  - Hydrocholecystis [Not Recovered/Not Resolved]
